FAERS Safety Report 19062479 (Version 1)
Quarter: 2021Q1

REPORT INFORMATION
  Report Type: Spontaneous
  Country: SE (occurrence: SE)
  Receive Date: 20210326
  Receipt Date: 20210326
  Transmission Date: 20210420
  Serious: Yes (Other)
  Sender: FDA-Public Use
  Company Number: SE-PFIZER INC-2021297477

PATIENT
  Age: 37 Year
  Sex: Female

DRUGS (1)
  1. DALACIN [Suspect]
     Active Substance: CLINDAMYCIN
     Indication: ERYSIPELAS
     Dosage: UNK
     Dates: start: 20210211

REACTIONS (2)
  - Erythema [Unknown]
  - Pharyngeal swelling [Unknown]

NARRATIVE: CASE EVENT DATE: 20210212
